FAERS Safety Report 13593409 (Version 2)
Quarter: 2018Q2

REPORT INFORMATION
  Report Type: Spontaneous
  Country: US (occurrence: US)
  Receive Date: 20170530
  Receipt Date: 20180522
  Transmission Date: 20180711
  Serious: Yes (Hospitalization)
  Sender: FDA-Public Use
  Company Number: US-TEVA-735930USA

PATIENT
  Sex: Female
  Weight: 82 kg

DRUGS (8)
  1. OXYBUTYNIN. [Concomitant]
     Active Substance: OXYBUTYNIN CHLORIDE
  2. ELIQUIS [Concomitant]
     Active Substance: APIXABAN
  3. NORVASC [Concomitant]
     Active Substance: AMLODIPINE BESYLATE
  4. LISINOPRIL. [Concomitant]
     Active Substance: LISINOPRIL
  5. TYLENOL 8HR [Concomitant]
     Active Substance: ACETAMINOPHEN
  6. SOTALOL. [Suspect]
     Active Substance: SOTALOL
     Indication: ATRIAL FIBRILLATION
     Dosage: 80 MILLIGRAM DAILY;
     Route: 065
     Dates: start: 201510, end: 201612
  7. VOLTAREN [Concomitant]
     Active Substance: DICLOFENAC SODIUM
  8. BABY ASPIRIN [Concomitant]
     Active Substance: ASPIRIN

REACTIONS (3)
  - Myalgia [Unknown]
  - Pain in extremity [Not Recovered/Not Resolved]
  - Atrial fibrillation [Unknown]

NARRATIVE: CASE EVENT DATE: 2016
